FAERS Safety Report 4987679-0 (Version None)
Quarter: 2006Q2

REPORT INFORMATION
  Report Type: 
  Country: None (occurrence: None)
  Receive Date: 20060428
  Receipt Date: 20060428
  Transmission Date: 20061013
  Serious: Yes (Life-Threatening, Hospitalization, Disabling)
  Sender: FDA-Public Use
  Company Number: None

PATIENT
  Age: 16 Year
  Sex: Female
  Weight: 61.2356 kg

DRUGS (2)
  1. CYMBALTA [Suspect]
     Indication: DEPRESSION
     Dosage: 120MG  DAILY PO
     Route: 048
     Dates: start: 20050329, end: 20060427
  2. CYMBALTA [Suspect]
     Indication: MIGRAINE
     Dosage: 120MG  DAILY PO
     Route: 048
     Dates: start: 20050329, end: 20060427

REACTIONS (8)
  - AMNESIA [None]
  - ANURIA [None]
  - CARDIAC DISORDER [None]
  - CONVULSION [None]
  - DELIRIUM [None]
  - DRUG DOSE OMISSION [None]
  - DRUG WITHDRAWAL SYNDROME [None]
  - HALLUCINATION [None]
